FAERS Safety Report 8214619-3 (Version None)
Quarter: 2012Q1

REPORT INFORMATION
  Report Type: 
  Country: None (occurrence: None)
  Receive Date: 20120316
  Receipt Date: 20120307
  Transmission Date: 20120608
  Serious: Yes (Hospitalization, Other)
  Sender: FDA-Public Use
  Company Number: JP-SANOFI-AVENTIS-2012SA016529

PATIENT
  Age: 58 Year
  Sex: Male
  Weight: 67 kg

DRUGS (12)
  1. ACETYLSALICYLIC ACID SRT [Suspect]
     Indication: ANTIPLATELET THERAPY
     Route: 048
     Dates: end: 20100501
  2. DILTIAZEM HCL [Concomitant]
  3. ATENOLOL AND CHLORTHALIDONE [Suspect]
     Route: 048
  4. ATORVASTATIN [Concomitant]
  5. ISOSORBIDE DINITRATE [Concomitant]
     Dosage: PATCH
  6. ACETYLSALICYLIC ACID SRT [Suspect]
     Route: 048
  7. ATENOLOL AND CHLORTHALIDONE [Suspect]
     Route: 048
  8. CANDESARTAN CILEXETIL [Concomitant]
  9. ACETYLSALICYLIC ACID SRT [Suspect]
     Route: 048
  10. ACETYLSALICYLIC ACID SRT [Suspect]
     Route: 048
  11. ATENOLOL AND CHLORTHALIDONE [Suspect]
     Indication: ANTIPLATELET THERAPY
     Route: 048
     Dates: end: 20100501
  12. ATENOLOL AND CHLORTHALIDONE [Suspect]
     Route: 048

REACTIONS (7)
  - CARDIOGENIC SHOCK [None]
  - BLOOD CREATINE PHOSPHOKINASE INCREASED [None]
  - POST PROCEDURAL HAEMORRHAGE [None]
  - DRUG WITHDRAWAL SYNDROME [None]
  - ACUTE MYOCARDIAL INFARCTION [None]
  - CHEST PAIN [None]
  - THROMBOSIS IN DEVICE [None]
